FAERS Safety Report 5195440-X (Version None)
Quarter: 2006Q4

REPORT INFORMATION
  Report Type: 
  Country: None (occurrence: None)
  Receive Date: 20061230
  Receipt Date: 20061220
  Transmission Date: 20070319
  Serious: Yes (Other)
  Sender: FDA-Public Use
  Company Number: US-ABBOTT-06P-163-0353841-00

PATIENT
  Age: 57 Year
  Sex: Male

DRUGS (2)
  1. RITONAVIR SOFT GELATIN CAPSULES [Suspect]
     Indication: HIV INFECTION
     Route: 048
  2. APTIVUS [Suspect]
     Indication: HIV INFECTION
     Route: 048

REACTIONS (1)
  - CEREBRAL HAEMORRHAGE [None]
